FAERS Safety Report 21784782 (Version 1)
Quarter: 2022Q4

REPORT INFORMATION
  Report Type: Spontaneous
  Country: US (occurrence: None)
  Receive Date: 20221223
  Receipt Date: 20221223
  Transmission Date: 20230112
  Serious: No
  Sender: FDA-Public Use
  Company Number: None

PATIENT
  Age: 68 Year
  Sex: Male

DRUGS (1)
  1. ABIRATERONE [Suspect]
     Active Substance: ABIRATERONE
     Dosage: FREQUENCY : DAILY;?
     Route: 048
     Dates: start: 202111

REACTIONS (5)
  - Respiratory syncytial virus infection [None]
  - Blood potassium abnormal [None]
  - Pericardial effusion [None]
  - Blood pressure increased [None]
  - Asthenia [None]

NARRATIVE: CASE EVENT DATE: 20221202
